FAERS Safety Report 20842205 (Version 3)
Quarter: 2022Q3

REPORT INFORMATION
  Report Type: Spontaneous
  Country: US (occurrence: US)
  Receive Date: 20220518
  Receipt Date: 20220808
  Transmission Date: 20221026
  Serious: No
  Sender: FDA-Public Use
  Company Number: US-BRISTOL-MYERS SQUIBB COMPANY-2022-026617

PATIENT
  Age: 84 Year
  Sex: Female

DRUGS (14)
  1. REVLIMID [Suspect]
     Active Substance: LENALIDOMIDE
     Indication: Plasma cell myeloma
     Dosage: TAKE 1 CAPSULE BY MOUTH EVERY DAY FOR 3 WEEKS ON, THEN 1 WEEK OFF
     Route: 048
  2. REVLIMID [Suspect]
     Active Substance: LENALIDOMIDE
     Indication: Plasma cell myeloma
     Dosage: TAKE 1 CAPSULE BY MOUTH EVERY DAY FOR 3 WEEKS ON, THEN 1 WEEK OFF
     Route: 048
     Dates: start: 20200411
  3. AMLODIPINE TAB [Concomitant]
     Indication: Product used for unknown indication
     Route: 065
  4. ASPIRIN LOW TAB [Concomitant]
     Indication: Product used for unknown indication
     Route: 065
  5. CYCLOBENZAPRINE HYDROCHLORIDE [Concomitant]
     Active Substance: CYCLOBENZAPRINE HYDROCHLORIDE
     Indication: Product used for unknown indication
     Route: 065
  6. JANUVIA TAB [Concomitant]
     Indication: Product used for unknown indication
     Route: 065
  7. LOSARTAN/HCT TAB [Concomitant]
     Indication: Product used for unknown indication
     Route: 065
  8. MAG OXIDE TAB [Concomitant]
     Indication: Product used for unknown indication
     Route: 065
  9. METFORMIN TAB [Concomitant]
     Indication: Product used for unknown indication
     Route: 065
  10. METOCLOPRAMIDE HYDROCHLORIDE [Concomitant]
     Active Substance: METOCLOPRAMIDE HYDROCHLORIDE
     Indication: Product used for unknown indication
     Route: 065
  11. SPIRONOLACT TAB [Concomitant]
     Indication: Product used for unknown indication
     Route: 065
  12. SYNTHROID TAB [Concomitant]
     Indication: Product used for unknown indication
     Route: 065
  13. WELCHOL TAB [Concomitant]
     Indication: Product used for unknown indication
     Route: 065
  14. ANAX TAB [Concomitant]
     Indication: Product used for unknown indication
     Route: 065

REACTIONS (4)
  - Fatigue [Unknown]
  - Oral candidiasis [Unknown]
  - Candida infection [Unknown]
  - Stomatitis [Unknown]

NARRATIVE: CASE EVENT DATE: 20220617
